FAERS Safety Report 18134789 (Version 1)
Quarter: 2020Q3

REPORT INFORMATION
  Report Type: Spontaneous
  Country: US (occurrence: US)
  Receive Date: 20200810
  Receipt Date: 20200810
  Transmission Date: 20201103
  Serious: Yes (Other)
  Sender: FDA-Public Use
  Company Number: None

PATIENT
  Age: 77 Year
  Sex: Female

DRUGS (4)
  1. DEXAMETHASONE 4MG [Concomitant]
     Active Substance: DEXAMETHASONE
     Dates: start: 20200725
  2. INLYTA [Suspect]
     Active Substance: AXITINIB
     Indication: RENAL CANCER
     Dates: start: 20200728
  3. CYCLOBENZAPRINE 5MG [Concomitant]
     Active Substance: CYCLOBENZAPRINE
     Dates: start: 20200729
  4. LIDOCAINE 5% PATCH [Concomitant]
     Active Substance: LIDOCAINE
     Dates: start: 20200725

REACTIONS (2)
  - Eating disorder [None]
  - Constipation [None]

NARRATIVE: CASE EVENT DATE: 20200806
